FAERS Safety Report 6954635-2 (Version None)
Quarter: 2010Q3

REPORT INFORMATION
  Report Type: 
  Country: None (occurrence: None)
  Receive Date: 20100829
  Receipt Date: 20100722
  Transmission Date: 20110219
  Serious: No
  Sender: FDA-Public Use
  Company Number: US-ABBOTT-10P-163-0659516-00

PATIENT
  Sex: Female
  Weight: 84.444 kg

DRUGS (8)
  1. NIASPAN [Suspect]
     Indication: HIGH DENSITY LIPOPROTEIN DECREASED
     Dates: start: 20081101, end: 20090101
  2. NIASPAN [Suspect]
     Dates: start: 20090101, end: 20100721
  3. ASPIRIN [Concomitant]
     Indication: PRODUCT USED FOR UNKNOWN INDICATION
  4. GLUCOTROL [Concomitant]
     Indication: DIABETES MELLITUS
  5. LIPITOR [Concomitant]
     Indication: BLOOD CHOLESTEROL INCREASED
  6. CALAN [Concomitant]
     Indication: HYPERTENSION
  7. PLAVIX [Concomitant]
     Indication: PRODUCT USED FOR UNKNOWN INDICATION
  8. AVALIDE [Concomitant]
     Indication: HYPERTENSION

REACTIONS (6)
  - ANGINA PECTORIS [None]
  - BLOOD PRESSURE DECREASED [None]
  - CHEST PAIN [None]
  - DIZZINESS [None]
  - HYPERTENSION [None]
  - NAUSEA [None]
